FAERS Safety Report 6906164-X (Version None)
Quarter: 2010Q3

REPORT INFORMATION
  Report Type: 
  Country: None (occurrence: None)
  Receive Date: 20100803
  Receipt Date: 20100803
  Transmission Date: 20110219
  Serious: Yes (Hospitalization)
  Sender: FDA-Public Use
  Company Number: None

PATIENT
  Age: 52 Year
  Sex: Female
  Weight: 61.2356 kg

DRUGS (1)
  1. ACYCLOVIR [Suspect]
     Indication: HERPES ZOSTER
     Dosage: 5 TIMES A DAY, ABOUT A MONTH AND 2 WEEK
     Dates: start: 20061102, end: 20061215

REACTIONS (3)
  - ALOPECIA [None]
  - JOINT LOCK [None]
  - STEVENS-JOHNSON SYNDROME [None]
